FAERS Safety Report 5167196-8 (Version None)
Quarter: 2006Q4

REPORT INFORMATION
  Report Type: 
  Country: None (occurrence: None)
  Receive Date: 20061130
  Receipt Date: 20061117
  Transmission Date: 20070319
  Serious: Yes (Life-Threatening, Hospitalization, Congenital Anomaly)
  Sender: FDA-Public Use
  Company Number: 6027418

PATIENT
  Age: 1 Day
  Sex: Female

DRUGS (1)
  1. BISOPROLOL FUMARATE [Suspect]
     Indication: MATERNAL HYPERTENSION AFFECTING FOETUS
     Dosage: 10 MG (10 MG, 1 IN 1 D) TRANSPLACENTAL
     Route: 064
     Dates: end: 20061010

REACTIONS (6)
  - CATHETER RELATED COMPLICATION [None]
  - CATHETER SEPSIS [None]
  - CLONUS [None]
  - DRUG EXPOSURE DURING PREGNANCY [None]
  - HEPATIC ARTERY THROMBOSIS [None]
  - HYPOGLYCAEMIA NEONATAL [None]
